FAERS Safety Report 12332948 (Version 1)
Quarter: 2016Q2

REPORT INFORMATION
  Report Type: Spontaneous
  Country: US (occurrence: US)
  Receive Date: 20160504
  Receipt Date: 20160504
  Transmission Date: 20160815
  Serious: No
  Sender: FDA-Public Use
  Company Number: US-ROCHE-ITM201505IM015248

PATIENT
  Sex: Male
  Weight: 76.27 kg

DRUGS (1)
  1. ESBRIET [Suspect]
     Active Substance: PIRFENIDONE
     Indication: IDIOPATHIC PULMONARY FIBROSIS
     Dosage: 3 CAPSULES 3 TIMES A DAY.
     Route: 048
     Dates: start: 20150416

REACTIONS (6)
  - Nasopharyngitis [Unknown]
  - Hypersensitivity [Unknown]
  - Malaise [Unknown]
  - Decreased appetite [Unknown]
  - Pruritus [Unknown]
  - Insomnia [Unknown]
